FAERS Safety Report 4843584-1 (Version None)
Quarter: 2005Q4

REPORT INFORMATION
  Report Type: 
  Country: None (occurrence: None)
  Receive Date: 20051202
  Receipt Date: 20051130
  Transmission Date: 20060501
  Serious: Yes (Life-Threatening)
  Sender: FDA-Public Use
  Company Number: AU-BOEHRINGER INGELHEIM PHARMACEUTICALS, INC.-2005-BP-20797AU

PATIENT
  Sex: Male

DRUGS (2)
  1. MOBIC [Suspect]
     Route: 048
  2. CLOPIDOGREL BISULFATE [Suspect]
     Route: 048

REACTIONS (4)
  - ABDOMINAL DISCOMFORT [None]
  - ABDOMINAL PAIN [None]
  - HYPERKALAEMIA [None]
  - RECTAL HAEMORRHAGE [None]
